FAERS Safety Report 4519920-2 (Version None)
Quarter: 2004Q4

REPORT INFORMATION
  Report Type: 
  Country: None (occurrence: None)
  Receive Date: 20041202
  Receipt Date: 20041202
  Transmission Date: 20050328
  Serious: Yes (Other)
  Sender: FDA-Public Use
  Company Number: None

PATIENT
  Age: 59 Year
  Sex: Male
  Weight: 75.298 kg

DRUGS (1)
  1. SPIRIVA [Suspect]
     Dosage: 18MCG   DAILY  RESPIRATORY
     Route: 055
     Dates: start: 20041101, end: 20041129

REACTIONS (3)
  - ABDOMINAL DISTENSION [None]
  - ERYTHEMA MULTIFORME [None]
  - TREATMENT NONCOMPLIANCE [None]
